FAERS Safety Report 6601680-2 (Version None)
Quarter: 2010Q1

REPORT INFORMATION
  Report Type: 
  Country: None (occurrence: None)
  Receive Date: 20100225
  Receipt Date: 20100218
  Transmission Date: 20100710
  Serious: Yes (Other)
  Sender: FDA-Public Use
  Company Number: IE-ROCHE-686163

PATIENT
  Sex: Female

DRUGS (2)
  1. XENICAL [Suspect]
     Indication: OBESITY
     Route: 048
     Dates: start: 20100201, end: 20100216
  2. COVERSYL [Concomitant]
     Route: 048
     Dates: start: 20080101

REACTIONS (2)
  - ARTHRALGIA [None]
  - JOINT SWELLING [None]
